FAERS Safety Report 5767217-5 (Version None)
Quarter: 2008Q2

REPORT INFORMATION
  Report Type: 
  Country: None (occurrence: None)
  Receive Date: 20080602
  Receipt Date: 20071019
  Transmission Date: 20081010
  Serious: Yes (Other)
  Sender: FDA-Public Use
  Company Number: 2007-04725

PATIENT
  Age: 37 Year
  Sex: Female

DRUGS (3)
  1. CARISOPRODOL [Suspect]
     Indication: DRUG ABUSE
     Dosage: 90 TABLET, PER WEEK, ORAL
     Route: 048
     Dates: start: 20050101
  2. LORAZEPAM [Concomitant]
  3. GEODON (ZIPRASIDONE HYDROCHLORIDE) [Concomitant]

REACTIONS (2)
  - DRUG ABUSER [None]
  - FEELING ABNORMAL [None]
